FAERS Safety Report 11988272 (Version 1)
Quarter: 2016Q1

REPORT INFORMATION
  Report Type: Spontaneous
  Country: US (occurrence: US)
  Receive Date: 20160202
  Receipt Date: 20160202
  Transmission Date: 20160526
  Serious: No
  Sender: FDA-Public Use
  Company Number: US-PFIZER INC-2016054661

PATIENT
  Sex: Male

DRUGS (2)
  1. LYRICA [Suspect]
     Active Substance: PREGABALIN
     Dosage: 200 MG, 2X/DAY, EVERY 12 HOURS
  2. LYRICA [Suspect]
     Active Substance: PREGABALIN
     Indication: SCIATICA
     Dosage: 300 MG, 3X/DAY, EVERY 8 HOURS

REACTIONS (5)
  - Throat irritation [Unknown]
  - Fall [Unknown]
  - Prescribed overdose [Unknown]
  - Foreign body [Unknown]
  - Pharyngeal inflammation [Unknown]
